FAERS Safety Report 4660929-6 (Version None)
Quarter: 2005Q2

REPORT INFORMATION
  Report Type: 
  Country: None (occurrence: None)
  Receive Date: 20050511
  Receipt Date: 20050419
  Transmission Date: 20051028
  Serious: Yes (Other)
  Sender: FDA-Public Use
  Company Number: 213539

PATIENT
  Age: 53 Year
  Sex: Female
  Weight: 90.7 kg

DRUGS (10)
  1. XOLAIR [Suspect]
     Dates: start: 20040305, end: 20041011
  2. COUMADIN [Concomitant]
  3. ASPIRIN [Concomitant]
  4. NORVASC [Concomitant]
  5. HYZAAR [Concomitant]
  6. LIPITOR [Concomitant]
  7. INDERAL [Concomitant]
  8. ADVAIR (FLUTICASONE PROPIONATE, SALMETEROL XINAFOATE) [Concomitant]
  9. SINGULAIR [Concomitant]
  10. ALBUTEROL (ALBUTEROL, ALBUTEROL SULFATE) [Concomitant]

REACTIONS (1)
  - CEREBROVASCULAR ACCIDENT [None]
